FAERS Safety Report 20758200 (Version 1)
Quarter: 2022Q2

REPORT INFORMATION
  Report Type: Spontaneous
  Country: JP (occurrence: JP)
  Receive Date: 20220427
  Receipt Date: 20220427
  Transmission Date: 20220721
  Serious: Yes (Death)
  Sender: FDA-Public Use
  Company Number: JP-DSJP-DSJ-2021-143278

PATIENT
  Age: 84 Year
  Sex: Female

DRUGS (1)
  1. EDOXABAN TOSYLATE [Suspect]
     Active Substance: EDOXABAN TOSYLATE
     Indication: Embolism venous
     Dosage: 30 MG, QD
     Route: 048
     Dates: end: 20211215

REACTIONS (2)
  - Breast cancer [Fatal]
  - Prothrombin time prolonged [Recovered/Resolved]
